FAERS Safety Report 8459732-0 (Version None)
Quarter: 2012Q2

REPORT INFORMATION
  Report Type: 
  Country: None (occurrence: None)
  Receive Date: 20120622
  Receipt Date: 20120613
  Transmission Date: 20120825
  Serious: Yes (Hospitalization, Disabling, Other)
  Sender: FDA-Public Use
  Company Number: US-MERCK-1110USA01788

PATIENT
  Age: 50 Year
  Sex: Female
  Weight: 80 kg

DRUGS (5)
  1. VITAMINS (UNSPECIFIED) [Concomitant]
     Route: 065
  2. CALCIUM (UNSPECIFIED) [Concomitant]
     Route: 065
  3. FOSAMAX [Suspect]
     Indication: PROPHYLAXIS
     Route: 048
     Dates: start: 20020401
  4. ALENDRONATE SODIUM [Suspect]
     Route: 048
     Dates: start: 20090201, end: 20101001
  5. VITAMIN D (UNSPECIFIED) [Concomitant]
     Route: 065

REACTIONS (17)
  - ALCOHOLISM [None]
  - WEIGHT INCREASED [None]
  - SPINAL OSTEOARTHRITIS [None]
  - CLAVICLE FRACTURE [None]
  - UPPER LIMB FRACTURE [None]
  - ARTHROPATHY [None]
  - POST-TRAUMATIC STRESS DISORDER [None]
  - FEMORAL NECK FRACTURE [None]
  - OSTEOPOROSIS [None]
  - OSTEOPENIA [None]
  - NAUSEA [None]
  - TREATMENT NONCOMPLIANCE [None]
  - HYPERTENSION [None]
  - ANXIETY [None]
  - LYMPHADENOPATHY [None]
  - CIRRHOSIS ALCOHOLIC [None]
  - BONE CYST [None]
